FAERS Safety Report 12397810 (Version 2)
Quarter: 2016Q3

REPORT INFORMATION
  Report Type: Report from Study
  Country: MX (occurrence: MX)
  Receive Date: 20160524
  Receipt Date: 20160919
  Transmission Date: 20161109
  Serious: Yes (Death)
  Sender: FDA-Public Use
  Company Number: MX-ROCHE-1762694

PATIENT
  Age: 73 Year
  Sex: Female
  Weight: 69 kg

DRUGS (2)
  1. CAPECITABINE. [Suspect]
     Active Substance: CAPECITABINE
     Indication: BREAST CANCER
     Dosage: CURRENT THERAPY, 7 CYCLES ADMINISTERED
     Route: 065
     Dates: start: 20150811, end: 20160208
  2. TRASTUZUMAB [Suspect]
     Active Substance: TRASTUZUMAB
     Indication: BREAST CANCER
     Dosage: CURRENT THERAPY, 7 CYCLES ADMINISTERED
     Route: 065
     Dates: start: 20150811, end: 20160208

REACTIONS (2)
  - Off label use [Unknown]
  - Death [Fatal]
